FAERS Safety Report 14714881 (Version 2)
Quarter: 2018Q2

REPORT INFORMATION
  Report Type: Spontaneous
  Country: NZ (occurrence: NZ)
  Receive Date: 20180404
  Receipt Date: 20180525
  Transmission Date: 20180711
  Serious: Yes (Other)
  Sender: FDA-Public Use
  Company Number: NZ-PFIZER INC-2018127991

PATIENT
  Age: 22 Year
  Sex: Male

DRUGS (1)
  1. GENOTROPIN [Suspect]
     Active Substance: SOMATROPIN
     Indication: GROWTH HORMONE DEFICIENCY
     Dosage: 1.5 IU, DAILY
     Route: 058

REACTIONS (7)
  - Chronic kidney disease [Unknown]
  - Gastritis [Unknown]
  - Anaemia [Unknown]
  - Dyspepsia [Unknown]
  - Hand fracture [Unknown]
  - Glomerulonephritis chronic [Unknown]
  - Gastrooesophageal reflux disease [Unknown]

NARRATIVE: CASE EVENT DATE: 1998
